FAERS Safety Report 18014252 (Version 1)
Quarter: 2020Q3

REPORT INFORMATION
  Report Type: Spontaneous
  Country: SE (occurrence: SE)
  Receive Date: 20200713
  Receipt Date: 20200713
  Transmission Date: 20201103
  Serious: Yes (Hospitalization)
  Sender: FDA-Public Use
  Company Number: SE-TEVA-2020-SE-1798863

PATIENT
  Age: 79 Year
  Sex: Male

DRUGS (7)
  1. TROMBYL [Concomitant]
     Active Substance: ASPIRIN
  2. PROPAVAN 25 MG TABLETT [Concomitant]
     Active Substance: PROPIOMAZINE
     Dosage: 1?2 TABLETS IF NEEDED
  3. CANDESARTAN. [Concomitant]
     Active Substance: CANDESARTAN
  4. LEUPRORELIN [Concomitant]
     Active Substance: LEUPROLIDE ACETATE
  5. TRAJENTA [Concomitant]
     Active Substance: LINAGLIPTIN
  6. INDERAL [Concomitant]
     Active Substance: PROPRANOLOL HYDROCHLORIDE
  7. BICALUTAMIDE. [Suspect]
     Active Substance: BICALUTAMIDE
     Indication: PROSTATE CANCER
     Dates: start: 2020, end: 20200414

REACTIONS (2)
  - Muscular weakness [Unknown]
  - Rhabdomyolysis [Unknown]

NARRATIVE: CASE EVENT DATE: 202004
